FAERS Safety Report 5452180-7 (Version None)
Quarter: 2007Q3

REPORT INFORMATION
  Report Type: 
  Country: None (occurrence: None)
  Receive Date: 20070914
  Receipt Date: 20070912
  Transmission Date: 20080115
  Serious: Yes (Life-Threatening, Hospitalization, Disabling, Other)
  Sender: FDA-Public Use
  Company Number: PHFR2007GB02686

PATIENT
  Age: 42 Year
  Sex: Male

DRUGS (8)
  1. DICLOFENAC [Suspect]
     Dosage: 75 MG, BID
     Route: 048
     Dates: end: 20070809
  2. CO-DANTHRAMER [Concomitant]
     Dosage: 10 ML, BID
     Route: 048
     Dates: start: 20070703
  3. CYCLIZINE [Concomitant]
     Dosage: 50 MG, TID
     Route: 048
     Dates: start: 20070703
  4. DIAZEPAM [Concomitant]
     Dosage: 2 MG, TID
     Route: 048
     Dates: start: 20070703
  5. HALOPERIDOL [Concomitant]
     Dosage: 1.5 MG, QD
     Route: 048
     Dates: start: 20070703
  6. LANSOPRAZOLE [Concomitant]
     Dosage: 30 MG, QD
     Route: 048
  7. MXL [Concomitant]
     Dosage: 360 MG, QD
     Route: 048
     Dates: start: 20070801, end: 20070809
  8. PAROXETINE [Concomitant]
     Dosage: 20 MG, QD
     Route: 048
     Dates: start: 20070703

REACTIONS (4)
  - BLOOD CREATININE INCREASED [None]
  - BLOOD UREA INCREASED [None]
  - FEELING ABNORMAL [None]
  - RENAL IMPAIRMENT [None]
